FAERS Safety Report 17117231 (Version 1)
Quarter: 2019Q4

REPORT INFORMATION
  Report Type: Spontaneous
  Country: DK (occurrence: DK)
  Receive Date: 20191205
  Receipt Date: 20191205
  Transmission Date: 20200122
  Serious: Yes (Hospitalization)
  Sender: FDA-Public Use
  Company Number: DK-ABBVIE-19K-044-3176109-00

PATIENT
  Age: 52 Year
  Sex: Male

DRUGS (5)
  1. HUMIRA [Suspect]
     Active Substance: ADALIMUMAB
     Indication: ANKYLOSING SPONDYLITIS
     Route: 058
     Dates: start: 201001, end: 20151204
  2. HUMIRA [Suspect]
     Active Substance: ADALIMUMAB
     Dosage: STRENGTH: 40 MG. DOSAGE: UNKNOWN
     Route: 058
     Dates: start: 20180425, end: 20190426
  3. METHOTREXATE. [Concomitant]
     Active Substance: METHOTREXATE
     Indication: ANKYLOSING SPONDYLITIS
     Dosage: STRENGTH: UNKNOWN. DOSAGE: UNKNOWN,
     Dates: start: 20140812
  4. HUMIRA [Suspect]
     Active Substance: ADALIMUMAB
     Route: 058
     Dates: start: 20160112, end: 201802
  5. FOLSYRE [Concomitant]
     Indication: ANKYLOSING SPONDYLITIS
     Dosage: STRENGTH: UNKNOWN. DOSAGE: UNKNOWN
     Dates: start: 20140812

REACTIONS (6)
  - Granulomatous lymphadenitis [Unknown]
  - Immunodeficiency [Unknown]
  - Infection [Unknown]
  - Tuberculosis [Recovering/Resolving]
  - Lymphadenopathy [Unknown]
  - C-reactive protein increased [Unknown]

NARRATIVE: CASE EVENT DATE: 2018
